FAERS Safety Report 8043119-9 (Version None)
Quarter: 2012Q1

REPORT INFORMATION
  Report Type: 
  Country: None (occurrence: None)
  Receive Date: 20120112
  Receipt Date: 20120102
  Transmission Date: 20120608
  Serious: Yes (Hospitalization)
  Sender: FDA-Public Use
  Company Number: FR-SANOFI-AVENTIS-2012SA000474

PATIENT
  Age: 75 Year
  Sex: Female

DRUGS (9)
  1. PREVISCAN [Concomitant]
  2. CALCIUM [Concomitant]
  3. TROPHIGIL [Concomitant]
  4. ACETAMINOPHEN [Concomitant]
  5. OMEPRAZOLE [Concomitant]
  6. UVEDOSE [Concomitant]
  7. MULTAQ [Suspect]
     Indication: ATRIAL FIBRILLATION
     Route: 065
     Dates: start: 20100901, end: 20110531
  8. ALPRAZOLAM [Concomitant]
  9. STRONTIUM RANELATE [Concomitant]

REACTIONS (2)
  - ATRIAL FIBRILLATION [None]
  - LOSS OF CONSCIOUSNESS [None]
